FAERS Safety Report 9417011 (Version 8)
Quarter: 2014Q4

REPORT INFORMATION
  Report Type: Report from Study
  Country: DE (occurrence: DE)
  Receive Date: 20130724
  Receipt Date: 20141103
  Transmission Date: 20150529
  Serious: Yes (Other)
  Sender: FDA-Public Use
  Company Number: DE-ROCHE-1248251

PATIENT
  Age: 66 Year
  Sex: Female
  Weight: 93 kg

DRUGS (3)
  1. VISMODEGIB [Suspect]
     Active Substance: VISMODEGIB
     Indication: BASAL CELL CARCINOMA
     Dosage: DATE OF LAST DOSE PRIOR TO LIVER ENZYME ELEVATION : 17/JUN/2013.
     Route: 048
     Dates: start: 20130521, end: 20130618
  2. BROMAZEPAM [Concomitant]
     Active Substance: BROMAZEPAM
     Indication: PANIC ATTACK
     Route: 065
     Dates: start: 1965
  3. TOGAL CLASSIC DUO [Concomitant]
     Route: 065
     Dates: start: 20130612, end: 20130616

REACTIONS (1)
  - Hepatic enzyme increased [Recovered/Resolved]

NARRATIVE: CASE EVENT DATE: 20130618
